FAERS Safety Report 9226525 (Version 1)
Quarter: 2013Q2

REPORT INFORMATION
  Report Type: Spontaneous
  Country: US (occurrence: US)
  Receive Date: 20130412
  Receipt Date: 20130412
  Transmission Date: 20140414
  Serious: No
  Sender: FDA-Public Use
  Company Number: US-009507513-1304USA003710

PATIENT
  Sex: Male
  Weight: 78.5 kg

DRUGS (8)
  1. PEGINTRON [Suspect]
     Dosage: 12MCG/0.5ML, MIX AS DIRECTED DIAL TO 0.5ML, INJECT SUBQ WEEKLY AS DIRECTED BY PHYSICIAN, F:REDIPEN
     Route: 058
  2. VICTRELIS [Suspect]
     Dosage: 200 MG, Q8H, 4 CAPSULES TAKEN EVEY 8 HOURS
     Route: 048
  3. RIBAPAK [Suspect]
     Dosage: 1200/DAY , FORMULATION: RIBAPAK
  4. OMEGA-3 MARINE TRIGLYCERIDES [Concomitant]
  5. ASPIRIN [Concomitant]
  6. ISOSORB (ISOSORBIDE MONONITRATE) [Concomitant]
  7. DILTIAZEM HYDROCHLORIDE [Concomitant]
  8. HYDROCHLOROT [Concomitant]

REACTIONS (1)
  - Pyrexia [Unknown]
